FAERS Safety Report 24039533 (Version 1)
Quarter: 2024Q3

REPORT INFORMATION
  Report Type: Spontaneous
  Country: US (occurrence: US)
  Receive Date: 20240702
  Receipt Date: 20240702
  Transmission Date: 20241017
  Serious: Yes (Other)
  Sender: ASTELLAS
  Company Number: US-ASTELLAS-2024US018196

PATIENT
  Age: 72 Year
  Sex: Male

DRUGS (8)
  1. XTANDI [Suspect]
     Active Substance: ENZALUTAMIDE
     Indication: Hormone-refractory prostate cancer
     Dosage: UNK UNK, UNKNOWN FREQ.
     Route: 065
     Dates: end: 202306
  2. CABAZITAXEL [Suspect]
     Active Substance: CABAZITAXEL
     Indication: Hormone-refractory prostate cancer
     Dosage: UNK UNK, UNKNOWN FREQ. (REPORTED AS X WITH PD)
     Route: 065
  3. PLUVICTO [Suspect]
     Active Substance: LUTETIUM LU-177 VIPIVOTIDE TETRAXETAN
     Indication: Hormone-refractory prostate cancer
     Dosage: UNK UNK, UNKNOWN FREQ. (REPORTED AS X 3)
     Route: 065
     Dates: start: 202312, end: 202403
  4. ZOMETA [Concomitant]
     Active Substance: ZOLEDRONIC ACID
     Indication: Hormone-refractory prostate cancer
     Dosage: UNK UNK, UNKNOWN FREQ.
     Route: 065
  5. TAXOTERE [Concomitant]
     Active Substance: DOCETAXEL
     Indication: Hormone-refractory prostate cancer
     Dosage: UNK UNK, UNKNOWN FREQ. (REPORTED AS X6)
     Route: 065
     Dates: start: 2016
  6. TAXOTERE [Concomitant]
     Active Substance: DOCETAXEL
     Dosage: UNK UNK, UNKNOWN FREQ. (REPORTED AS X 3)
     Route: 065
     Dates: start: 2017
  7. TAXOTERE [Concomitant]
     Active Substance: DOCETAXEL
     Dosage: UNK UNK, UNKNOWN FREQ. (REPORTED AS X 6)
     Route: 065
     Dates: start: 20211108
  8. Abiraterone;Prednisone [Concomitant]
     Indication: Hormone-refractory prostate cancer
     Dosage: UNK UNK, UNKNOWN FREQ. (REPORTED AS X1.5YEARS, STOPPED DUE TO TACHYCARDIA)
     Route: 065
     Dates: start: 2017

REACTIONS (3)
  - Malignant neoplasm progression [Unknown]
  - Cytopenia [Unknown]
  - Prostatic specific antigen increased [Unknown]
